FAERS Safety Report 25456986 (Version 1)
Quarter: 2025Q2

REPORT INFORMATION
  Report Type: Spontaneous
  Country: US (occurrence: US)
  Receive Date: 20250619
  Receipt Date: 20250619
  Transmission Date: 20250716
  Serious: No
  Sender: SANOFI AVENTIS
  Company Number: US-SA-2025SA173400

PATIENT
  Sex: Female
  Weight: 75.74 kg

DRUGS (14)
  1. DUPIXENT [Suspect]
     Active Substance: DUPILUMAB
     Indication: Product used for unknown indication
     Dosage: 300 MG, QOW
     Route: 058
     Dates: end: 202505
  2. BIOTIN [Concomitant]
     Active Substance: BIOTIN
  3. LYSINE [Concomitant]
     Active Substance: LYSINE
  4. VITAMINS NOS [Concomitant]
     Active Substance: VITAMINS
  5. XANAX [Concomitant]
     Active Substance: ALPRAZOLAM
  6. METHOCARBAMOL [Concomitant]
     Active Substance: METHOCARBAMOL
  7. MELOXICAM [Concomitant]
     Active Substance: MELOXICAM
  8. SPIRONOLACTONE [Concomitant]
     Active Substance: SPIRONOLACTONE
  9. VALSARTAN [Concomitant]
     Active Substance: VALSARTAN
  10. MONTELUKAST SODIUM [Concomitant]
     Active Substance: MONTELUKAST SODIUM
  11. LEVOTHYROXINE SODIUM [Concomitant]
     Active Substance: LEVOTHYROXINE SODIUM
  12. COENZYME Q10 [Concomitant]
     Active Substance: DIETARY SUPPLEMENT\UBIDECARENONE
  13. CRESTOR [Concomitant]
     Active Substance: ROSUVASTATIN CALCIUM
  14. WELLBUTRIN XL [Concomitant]
     Active Substance: BUPROPION HYDROCHLORIDE

REACTIONS (1)
  - Proteinuria [Unknown]
